FAERS Safety Report 17517130 (Version 1)
Quarter: 2020Q1

REPORT INFORMATION
  Report Type: Report from Study
  Country: RU (occurrence: RU)
  Receive Date: 20200309
  Receipt Date: 20200309
  Transmission Date: 20200409
  Serious: Yes (Other)
  Sender: FDA-Public Use
  Company Number: RU-JNJFOC-20200241797

PATIENT

DRUGS (3)
  1. BEDAQUILINE [Suspect]
     Active Substance: BEDAQUILINE
     Indication: TUBERCULOSIS
     Route: 048
  2. AZITHROMYCIN ANHYDROUS. [Suspect]
     Active Substance: AZITHROMYCIN ANHYDROUS
     Indication: TUBERCULOSIS
     Route: 065
  3. MOXIFLOXACIN. [Suspect]
     Active Substance: MOXIFLOXACIN
     Indication: TUBERCULOSIS
     Route: 065

REACTIONS (7)
  - Gastrointestinal disorder [Unknown]
  - Electrocardiogram QT prolonged [Unknown]
  - Deafness [Unknown]
  - Hepatitis [Unknown]
  - Torsade de pointes [Unknown]
  - Tendon disorder [Unknown]
  - Sinus bradycardia [Unknown]
